FAERS Safety Report 4324343-5 (Version None)
Quarter: 2004Q1

REPORT INFORMATION
  Report Type: 
  Country: None (occurrence: None)
  Receive Date: 20040326
  Receipt Date: 20040202
  Transmission Date: 20041129
  Serious: No
  Sender: FDA-Public Use
  Company Number: US-GLAXOSMITHKLINE-A0496046A

PATIENT
  Age: 73 Year
  Sex: Female

DRUGS (6)
  1. ADVAIR DISKUS 100/50 [Suspect]
     Dosage: 1PUFF TWICE PER DAY
     Route: 055
     Dates: start: 20040131, end: 20040131
  2. MORPHINE [Concomitant]
     Dosage: 15MG TWICE PER DAY
     Route: 048
  3. LIPITOR [Concomitant]
     Dosage: 120MG UNKNOWN
     Route: 065
  4. CODEINE [Concomitant]
  5. ASPIRIN [Concomitant]
     Dosage: 80MG PER DAY
     Route: 065
  6. EFFEXOR [Concomitant]
     Dosage: 70MG PER DAY
     Route: 065

REACTIONS (4)
  - DYSPNOEA [None]
  - MUSCLE TWITCHING [None]
  - RESTLESS LEGS SYNDROME [None]
  - RESTLESSNESS [None]
